FAERS Safety Report 9805301 (Version 1)
Quarter: 2014Q1

REPORT INFORMATION
  Report Type: Spontaneous
  Country: US (occurrence: None)
  Receive Date: 20140108
  Receipt Date: 20140108
  Transmission Date: 20141002
  Serious: Yes (Disabling)
  Sender: FDA-Public Use
  Company Number: None

PATIENT
  Age: 65 Year
  Sex: Female
  Weight: 73.94 kg

DRUGS (13)
  1. FUNGIFOAM [Suspect]
     Indication: DRY SKIN
     Dosage: QUANTITY: ^APPLY A THIN LAYER OF THE PRODUCT OVER THE AFFECTED AREA ?FREQUENCY: TWICE DAILY (MORNING AND NIGHT)?HOW: ON THE SKIN (GLOVED MY HANDS TO APPLY)
     Route: 061
     Dates: start: 20131218, end: 20131222
  2. FUNGIFOAM [Suspect]
     Indication: SKIN FISSURES
     Dosage: QUANTITY: ^APPLY A THIN LAYER OF THE PRODUCT OVER THE AFFECTED AREA ?FREQUENCY: TWICE DAILY (MORNING AND NIGHT)?HOW: ON THE SKIN (GLOVED MY HANDS TO APPLY)
     Route: 061
     Dates: start: 20131218, end: 20131222
  3. FUNGIFOAM [Suspect]
     Indication: FUNGAL INFECTION
     Dosage: QUANTITY: ^APPLY A THIN LAYER OF THE PRODUCT OVER THE AFFECTED AREA ?FREQUENCY: TWICE DAILY (MORNING AND NIGHT)?HOW: ON THE SKIN (GLOVED MY HANDS TO APPLY)
     Route: 061
     Dates: start: 20131218, end: 20131222
  4. VAGIFEM [Concomitant]
  5. VITAMINS [Concomitant]
  6. CENTRUM SILVER [Concomitant]
  7. FISH OIL [Concomitant]
  8. FLAXSEED OIL [Concomitant]
  9. ACIDOPHILUS [Concomitant]
  10. BIOTIN [Concomitant]
  11. MELATONIN [Concomitant]
  12. NAPROXEN [Concomitant]
  13. GARLIC COMPLEX (W/B6 B12 FOLIC ACID) [Concomitant]

REACTIONS (3)
  - Skin fissures [None]
  - Skin haemorrhage [None]
  - Pain [None]
